FAERS Safety Report 10957696 (Version 1)
Quarter: 2015Q1

REPORT INFORMATION
  Report Type: Spontaneous
  Country: FI (occurrence: FI)
  Receive Date: 20150326
  Receipt Date: 20150326
  Transmission Date: 20150721
  Serious: Yes (Hospitalization, Other)
  Sender: FDA-Public Use
  Company Number: FI-APOTEX-2015AP007656

PATIENT
  Sex: Female

DRUGS (4)
  1. TRAMADOL [Concomitant]
     Active Substance: TRAMADOL
     Indication: PRODUCT USED FOR UNKNOWN INDICATION
     Route: 065
  2. PAXIL [Suspect]
     Active Substance: PAROXETINE HYDROCHLORIDE
     Indication: DEPRESSION
     Dosage: UNK
     Route: 048
     Dates: start: 201410, end: 201501
  3. OPAMOX [Concomitant]
     Indication: PRODUCT USED FOR UNKNOWN INDICATION
     Route: 065
  4. QUETIAPINE [Concomitant]
     Active Substance: QUETIAPINE
     Indication: PRODUCT USED FOR UNKNOWN INDICATION
     Route: 065

REACTIONS (8)
  - Intentional self-injury [Not Recovered/Not Resolved]
  - Palpitations [Not Recovered/Not Resolved]
  - Orgasm abnormal [Unknown]
  - Suicide attempt [Recovered/Resolved]
  - Nausea [Unknown]
  - Mental disorder [Unknown]
  - Withdrawal syndrome [Unknown]
  - Sleep disorder [Unknown]

NARRATIVE: CASE EVENT DATE: 201501
